FAERS Safety Report 7022773-4 (Version None)
Quarter: 2010Q3

REPORT INFORMATION
  Report Type: 
  Country: None (occurrence: None)
  Receive Date: 20100930
  Receipt Date: 20100923
  Transmission Date: 20110219
  Serious: Yes (Other)
  Sender: FDA-Public Use
  Company Number: A0883893A

PATIENT

DRUGS (1)
  1. AVAMYS [Suspect]
     Indication: PRODUCT USED FOR UNKNOWN INDICATION
     Route: 065

REACTIONS (4)
  - EPISTAXIS [None]
  - NASAL MUCOSA ATROPHY [None]
  - NASAL MUCOSAL DISORDER [None]
  - NASAL ULCER [None]
